FAERS Safety Report 24710934 (Version 1)
Quarter: 2024Q4

REPORT INFORMATION
  Report Type: Report from Study
  Country: VN (occurrence: VN)
  Receive Date: 20241209
  Receipt Date: 20241209
  Transmission Date: 20250115
  Serious: Yes (Other)
  Sender: ROCHE
  Company Number: VN-ROCHE-10000150756

PATIENT

DRUGS (3)
  1. BEVACIZUMAB [Suspect]
     Active Substance: BEVACIZUMAB
     Indication: Cervix carcinoma
     Route: 065
  2. PACLITAXEL [Suspect]
     Active Substance: PACLITAXEL
     Indication: Cervix carcinoma
     Route: 065
  3. CARBOPLATIN [Suspect]
     Active Substance: CARBOPLATIN
     Indication: Cervix carcinoma
     Route: 065

REACTIONS (9)
  - Haemoglobin decreased [Unknown]
  - Leukopenia [Unknown]
  - Granulocytopenia [Unknown]
  - Thrombocytopenia [Unknown]
  - Off label use [Unknown]
  - Anaemia [Unknown]
  - Proteinuria [Unknown]
  - Large intestine perforation [Unknown]
  - Thrombosis [Unknown]
